FAERS Safety Report 10144296 (Version 4)
Quarter: 2014Q2

REPORT INFORMATION
  Report Type: Spontaneous
  Country: US (occurrence: US)
  Receive Date: 20140430
  Receipt Date: 20140618
  Transmission Date: 20141212
  Serious: Yes (Life-Threatening, Hospitalization, Other)
  Sender: FDA-Public Use
  Company Number: PHEH2014US008144

PATIENT
  Age: 83 Year
  Sex: Female

DRUGS (8)
  1. RECLAST [Suspect]
     Indication: OSTEOPOROSIS
     Dosage: 5 MG, UNK
     Route: 042
     Dates: start: 20140404, end: 20140404
  2. PREDNISONE [Concomitant]
     Indication: POLYMYALGIA RHEUMATICA
     Dosage: 1.5 MG, UNK
     Route: 048
  3. PREDNISONE [Concomitant]
     Dosage: 1 MG, QD
  4. LISINOPRIL [Concomitant]
     Indication: HYPERTENSION
     Dosage: 5 MG, BID
     Route: 048
  5. CALCIUM [Concomitant]
     Dosage: UNK UKN, UNK
  6. VITAMIN D [Concomitant]
     Dosage: UNK UKN, UNK
  7. B12-VITAMIN [Concomitant]
     Dosage: UNK UKN, ONCE DAILY
  8. ASA [Concomitant]
     Dosage: 81 MG, BID
     Route: 048

REACTIONS (10)
  - Retching [Recovering/Resolving]
  - Swelling face [Recovering/Resolving]
  - Chest pain [Recovering/Resolving]
  - Hypertension [Recovering/Resolving]
  - Vomiting [Recovering/Resolving]
  - Peripheral swelling [Recovering/Resolving]
  - Headache [Recovering/Resolving]
  - Feeling abnormal [Recovering/Resolving]
  - Joint swelling [Recovering/Resolving]
  - Nausea [Recovering/Resolving]
